FAERS Safety Report 8281943 (Version 4)
Quarter: 2020Q3

REPORT INFORMATION
  Report Type: Report from Study
  Country: NO (occurrence: NO)
  Receive Date: 20111209
  Receipt Date: 20171116
  Transmission Date: 20201104
  Serious: Yes (Other)
  Sender: FDA-Public Use
  Company Number: NO-ROCHE-1017097

PATIENT

DRUGS (8)
  1. MYCOPHENOLATE MOFETIL. [Concomitant]
     Active Substance: MYCOPHENOLATE MOFETIL
     Indication: IMMUNOSUPPRESSION
     Route: 065
  2. CYCLOSPORINE. [Concomitant]
     Active Substance: CYCLOSPORINE
     Indication: IMMUNOSUPPRESSION
  3. WEIFA?KALSIUM [Concomitant]
     Indication: BONE LOSS
     Route: 048
  4. TACROLIMUS. [Concomitant]
     Active Substance: TACROLIMUS
     Indication: IMMUNOSUPPRESSION
  5. IBANDRONIC ACID. [Suspect]
     Active Substance: IBANDRONIC ACID
     Indication: BONE LOSS
     Dosage: OVER 3 MONTHS
     Route: 042
  6. CALCITRIOL. [Concomitant]
     Active Substance: CALCITRIOL
     Indication: BONE LOSS
     Route: 048
  7. PREDNISONE. [Concomitant]
     Active Substance: PREDNISONE
     Indication: IMMUNOSUPPRESSION
  8. BASILIXIMAB [Concomitant]
     Active Substance: BASILIXIMAB
     Dosage: DAY 0 AND 4
     Route: 042

REACTIONS (1)
  - Cytomegalovirus infection [Unknown]
